FAERS Safety Report 21716640 (Version 2)
Quarter: 2023Q1

REPORT INFORMATION
  Report Type: Spontaneous
  Country: US (occurrence: US)
  Receive Date: 20221212
  Receipt Date: 20230113
  Transmission Date: 20230417
  Serious: No
  Sender: FDA-Public Use
  Company Number: US-Calliditas-2022CAL00585

PATIENT
  Age: 25 Year
  Sex: Female

DRUGS (4)
  1. TARPEYO [Suspect]
     Active Substance: BUDESONIDE
     Indication: IgA nephropathy
     Dosage: 8 MG (4 MG CAPSULES) ONCE DAILY
     Route: 048
     Dates: start: 20221119
  2. FISH OIL [Concomitant]
     Active Substance: FISH OIL
     Dosage: 1000 MG ONCE IN THE MORNING
  3. CALCIUM [Concomitant]
     Active Substance: CALCIUM
  4. LOSARTAN [Concomitant]
     Active Substance: LOSARTAN
     Dosage: 100 MG ONCE A NIGHT

REACTIONS (5)
  - Dizziness [Recovering/Resolving]
  - Prescribed underdose [Not Recovered/Not Resolved]
  - Cognitive disorder [Recovering/Resolving]
  - Feeling abnormal [Recovering/Resolving]
  - Influenza [Recovered/Resolved]

NARRATIVE: CASE EVENT DATE: 20221119
